FAERS Safety Report 4558561-8 (Version None)
Quarter: 2005Q1

REPORT INFORMATION
  Report Type: 
  Country: None (occurrence: None)
  Receive Date: 20050121
  Receipt Date: 20050112
  Transmission Date: 20050727
  Serious: Yes (Other)
  Sender: FDA-Public Use
  Company Number: US-BRISTOL-MYERS SQUIBB COMPANY-12824702

PATIENT
  Age: 42 Year
  Sex: Female

DRUGS (2)
  1. CARDIOLITE [Suspect]
     Indication: CARDIAC STRESS TEST
     Route: 040
     Dates: start: 20050112, end: 20050112
  2. THALLIUM [Concomitant]

REACTIONS (2)
  - DIZZINESS [None]
  - DYSKINESIA [None]
